FAERS Safety Report 15901557 (Version 1)
Quarter: 2019Q1

REPORT INFORMATION
  Report Type: Spontaneous
  Country: IN (occurrence: IN)
  Receive Date: 20190201
  Receipt Date: 20190201
  Transmission Date: 20190417
  Serious: Yes (Death, Other)
  Sender: FDA-Public Use
  Company Number: IN-FRESENIUS KABI-FK201901092

PATIENT
  Sex: Female

DRUGS (4)
  1. BUDESONIDE. [Suspect]
     Active Substance: BUDESONIDE
     Indication: WHEEZING
     Route: 055
  2. IVABRADINE [Suspect]
     Active Substance: IVABRADINE
     Indication: HEART RATE
     Route: 065
  3. LEVOSALBUTAMOL [Suspect]
     Active Substance: LEVALBUTEROL
     Indication: PRODUCT USED FOR UNKNOWN INDICATION
     Route: 065
  4. FUROSEMIDE (MANUFACTURER UNKNOWN) [Suspect]
     Active Substance: FUROSEMIDE
     Indication: PREOPERATIVE CARE
     Route: 065

REACTIONS (2)
  - Death [Fatal]
  - Exposure during pregnancy [Unknown]
